FAERS Safety Report 17998424 (Version 1)
Quarter: 2020Q3

REPORT INFORMATION
  Report Type: Spontaneous
  Country: US (occurrence: US)
  Receive Date: 20200709
  Receipt Date: 20200709
  Transmission Date: 20201103
  Serious: Yes (Other)
  Sender: FDA-Public Use
  Company Number: US-CADILA HEALTHCARE LIMITED-US-ZYDUS-053121

PATIENT

DRUGS (11)
  1. PENTOBARBITAL. [Suspect]
     Active Substance: PENTOBARBITAL
     Indication: PRODUCT USED FOR UNKNOWN INDICATION
     Dosage: UNK
     Route: 065
  2. HALOPERIDOL. [Suspect]
     Active Substance: HALOPERIDOL
     Indication: DELIRIUM
     Dosage: 1 MILLIGRAM
     Route: 042
  3. KETAMINE [Suspect]
     Active Substance: KETAMINE
     Indication: PRODUCT USED FOR UNKNOWN INDICATION
     Dosage: UNK
     Route: 065
  4. FENTANYL. [Suspect]
     Active Substance: FENTANYL
     Indication: PRODUCT USED FOR UNKNOWN INDICATION
     Dosage: UNK
     Route: 065
  5. MELATONIN [Suspect]
     Active Substance: MELATONIN
     Indication: DELIRIUM
     Dosage: UNK
     Route: 065
  6. NALOXONE [Concomitant]
     Active Substance: NALOXONE
     Indication: PRURITUS
     Dosage: UNK
  7. RISPERIDONE. [Suspect]
     Active Substance: RISPERIDONE
     Indication: DELIRIUM
     Dosage: 0.25 MILLIGRAM, QD
     Route: 065
  8. DEXMEDETOMIDINE. [Suspect]
     Active Substance: DEXMEDETOMIDINE
     Indication: PRODUCT USED FOR UNKNOWN INDICATION
     Dosage: 1 MICROGRAM/KILOGRAM PER HOUR
     Route: 065
  9. CISATRACURIUM BESYLATE. [Suspect]
     Active Substance: CISATRACURIUM BESYLATE
     Indication: PRODUCT USED FOR UNKNOWN INDICATION
     Dosage: 2 MICROGRAM/KILOGRAM PER MIN
     Route: 065
  10. MIDAZOLAM. [Suspect]
     Active Substance: MIDAZOLAM
     Indication: PRODUCT USED FOR UNKNOWN INDICATION
     Dosage: 0.21 MILLIGRAM/KILOGRAM, TID
     Route: 065
  11. HYDROMORPHONE [Suspect]
     Active Substance: HYDROMORPHONE
     Indication: PRODUCT USED FOR UNKNOWN INDICATION
     Dosage: 0.06 MILLIGRAM/KILOGRAM PER HOUR
     Route: 065

REACTIONS (3)
  - Off label use [Unknown]
  - Delirium [Recovered/Resolved]
  - Sedation [Unknown]
